FAERS Safety Report 12329941 (Version 2)
Quarter: 2016Q2

REPORT INFORMATION
  Report Type: Spontaneous
  Country: JP (occurrence: JP)
  Receive Date: 20160504
  Receipt Date: 20160616
  Transmission Date: 20160815
  Serious: Yes (Hospitalization, Other)
  Sender: FDA-Public Use
  Company Number: JP-ASTRAZENECA-2016SE38810

PATIENT
  Age: 27781 Day
  Sex: Female
  Weight: 54 kg

DRUGS (4)
  1. MERISLON [Concomitant]
     Active Substance: BETAHISTINE MESILATE
     Route: 048
     Dates: start: 20151019
  2. BROTIZOLAM OD [Concomitant]
     Route: 048
     Dates: start: 20150824
  3. ATP [Concomitant]
     Active Substance: ADENOSINE TRIPHOSPHATE DISODIUM
     Route: 048
     Dates: start: 20151019
  4. FASLODEX [Suspect]
     Active Substance: FULVESTRANT
     Indication: BREAST CANCER RECURRENT
     Route: 030
     Dates: start: 20150810

REACTIONS (4)
  - Lacunar infarction [Unknown]
  - Dizziness [Recovering/Resolving]
  - Anxiety [Unknown]
  - Nausea [Recovering/Resolving]

NARRATIVE: CASE EVENT DATE: 20151018
